FAERS Safety Report 21927693 (Version 7)
Quarter: 2023Q4

REPORT INFORMATION
  Report Type: Spontaneous
  Country: US (occurrence: US)
  Receive Date: 20230130
  Receipt Date: 20231218
  Transmission Date: 20240109
  Serious: No
  Sender: FDA-Public Use
  Company Number: US-PFIZER INC-PV202300017258

PATIENT
  Age: 77 Year
  Sex: Female

DRUGS (2)
  1. LORBRENA [Suspect]
     Active Substance: LORLATINIB
     Indication: Lung carcinoma cell type unspecified stage III
     Dosage: 75 MG, DAILY (3 TABLETS DAILY)
     Route: 048
  2. LORBRENA [Suspect]
     Active Substance: LORLATINIB
     Dosage: 75 MG, 1X/DAY (3QD 30 DAYS W/O FOOD)
     Route: 048

REACTIONS (2)
  - Illness [Unknown]
  - Visual impairment [Unknown]
